FAERS Safety Report 7959029-9 (Version None)
Quarter: 2011Q4

REPORT INFORMATION
  Report Type: 
  Country: None (occurrence: None)
  Receive Date: 20111206
  Receipt Date: 20111128
  Transmission Date: 20120403
  Serious: Yes (Hospitalization)
  Sender: FDA-Public Use
  Company Number: US-SANOFI-AVENTIS-2011SA078232

PATIENT
  Age: 42 Year
  Sex: Male

DRUGS (1)
  1. LANTUS [Suspect]
     Indication: TYPE 2 DIABETES MELLITUS
     Dosage: 62 UNITS IN AM AND 63 UNITS IN PM
     Route: 058
     Dates: start: 20091201

REACTIONS (1)
  - CARDIAC FAILURE CONGESTIVE [None]
